FAERS Safety Report 7634986-9 (Version None)
Quarter: 2011Q3

REPORT INFORMATION
  Report Type: 
  Country: None (occurrence: None)
  Receive Date: 20110718
  Receipt Date: 20110617
  Transmission Date: 20111222
  Serious: Yes (Congenital Anomaly, Other)
  Sender: FDA-Public Use
  Company Number: AUR-APL-2010-03020

PATIENT
  Age: 1 Hour
  Sex: Female
  Weight: 3.2 kg

DRUGS (5)
  1. PROPRANOLOL [Suspect]
     Indication: PRODUCT USED FOR UNKNOWN INDICATION
     Dosage: TRANSPLACENTAL
     Route: 064
  2. THIAMINE HCL [Suspect]
     Indication: PRODUCT USED FOR UNKNOWN INDICATION
     Dosage: (20 MG,1 D),TRANSPLACENTAL
     Route: 064
     Dates: start: 20100301
  3. VITAMIN B COMPLEX CAP [Suspect]
     Indication: PRODUCT USED FOR UNKNOWN INDICATION
     Dosage: 2 DOSAGE FORMS (1 DOSAGE FORMS,2 IN 1 D),TRANSPLACENTAL
     Route: 064
  4. CAMPRAL [Suspect]
     Indication: ALCOHOLISM
     Dosage: TRANSPLACENTAL
     Route: 064
     Dates: start: 20100301, end: 20100701
  5. VENLAFAXINE [Suspect]
     Indication: PRODUCT USED FOR UNKNOWN INDICATION
     Dosage: TRANSPLACENTAL
     Route: 064

REACTIONS (5)
  - EAR MALFORMATION [None]
  - CLEFT PALATE [None]
  - FOETAL ALCOHOL SYNDROME [None]
  - DYSMORPHISM [None]
  - MATERNAL DRUGS AFFECTING FOETUS [None]
